FAERS Safety Report 20072622 (Version 3)
Quarter: 2021Q4

REPORT INFORMATION
  Report Type: Spontaneous
  Country: US (occurrence: US)
  Receive Date: 20211116
  Receipt Date: 20211216
  Transmission Date: 20220304
  Serious: Yes (Other)
  Sender: FDA-Public Use
  Company Number: US-Accord-245045

PATIENT
  Age: 36 Year
  Sex: Male

DRUGS (4)
  1. CLOZAPINE [Suspect]
     Active Substance: CLOZAPINE
     Indication: Schizophrenia
     Dosage: TWO TIMES PER DAY COMBINED 500 MG DAILY DOSE(300 MG A DAY IN THE MORNING AND 200 MG A DAY AT NIGHT)
  2. ATORVASTATIN [Concomitant]
     Active Substance: ATORVASTATIN
     Indication: Hyperlipidaemia
  3. GEMFIBROZIL [Concomitant]
     Active Substance: GEMFIBROZIL
     Indication: Hypertriglyceridaemia
     Dosage: TWO TIMES PER DAY
  4. GABAPENTIN [Concomitant]
     Active Substance: GABAPENTIN
     Indication: Anxiety
     Dosage: 200 MG TWO TIMES PER DAY?(UP TO 1800 MG DAILY)

REACTIONS (1)
  - Pain [Recovering/Resolving]
